FAERS Safety Report 8466797-9 (Version None)
Quarter: 2012Q2

REPORT INFORMATION
  Report Type: 
  Country: None (occurrence: None)
  Receive Date: 20120626
  Receipt Date: 20120619
  Transmission Date: 20120825
  Serious: Yes (Other)
  Sender: FDA-Public Use
  Company Number: AU-PFIZER INC-2012147553

PATIENT
  Sex: Female

DRUGS (2)
  1. EFFEXOR XR [Suspect]
     Indication: MARITAL PROBLEM
     Dosage: 75 MG, UNK
     Dates: start: 20050101
  2. EFFEXOR XR [Suspect]
     Dosage: SLOWLY PUTTING UP HER DOSE TO 300 MG, DAILY

REACTIONS (2)
  - MENTAL IMPAIRMENT [None]
  - WITHDRAWAL SYNDROME [None]
